FAERS Safety Report 9209888 (Version 1)
Quarter: 2013Q2

REPORT INFORMATION
  Report Type: Spontaneous
  Country: US (occurrence: None)
  Receive Date: 20130403
  Receipt Date: 20130403
  Transmission Date: 20140414
  Serious: Yes (Hospitalization)
  Sender: FDA-Public Use
  Company Number: None

PATIENT
  Age: 40 Year
  Sex: Female
  Weight: 74.84 kg

DRUGS (3)
  1. BLEOMYCIN [Suspect]
  2. CISPLATIN [Suspect]
  3. ETOPOSIDE (VP-16) [Suspect]

REACTIONS (6)
  - Abdominal pain [None]
  - Diarrhoea [None]
  - Hypokalaemia [None]
  - Hypomagnesaemia [None]
  - Culture stool positive [None]
  - Clostridium test positive [None]
